FAERS Safety Report 7913478-3 (Version None)
Quarter: 2011Q4

REPORT INFORMATION
  Report Type: 
  Country: None (occurrence: None)
  Receive Date: 20111110
  Receipt Date: 20111103
  Transmission Date: 20120403
  Serious: Yes (Death, Hospitalization)
  Sender: FDA-Public Use
  Company Number: 2011SP050071

PATIENT
  Age: 61 Year
  Sex: Female

DRUGS (7)
  1. FLURAZEPAM HCL [Suspect]
     Indication: BIPOLAR DISORDER
     Dosage: 15 MG;QD
     Dates: start: 20100412, end: 20100424
  2. REMERON [Suspect]
     Indication: BIPOLAR II DISORDER
     Dosage: 45 MG;QD ; 60 MG;QD
     Dates: start: 20100420, end: 20100424
  3. REMERON [Suspect]
     Indication: BIPOLAR II DISORDER
     Dosage: 45 MG;QD ; 60 MG;QD
     Dates: start: 20100410
  4. REMERON [Suspect]
     Indication: BIPOLAR II DISORDER
     Dosage: 45 MG;QD ; 60 MG;QD
     Dates: start: 20100413, end: 20100419
  5. LITHIUM CARBONATE [Suspect]
     Indication: PRODUCT USED FOR UNKNOWN INDICATION
     Dosage: 4 DF
     Dates: start: 20100410
  6. LAMICTAL [Suspect]
     Indication: BIPOLAR II DISORDER
     Dosage: 25 MG;QD
     Dates: start: 20100413, end: 20100424
  7. ZOLPIDEM TARTRATE [Suspect]
     Indication: PRODUCT USED FOR UNKNOWN INDICATION
     Dates: start: 20100410

REACTIONS (4)
  - DIARRHOEA [None]
  - COMPLETED SUICIDE [None]
  - MULTIPLE DRUG OVERDOSE INTENTIONAL [None]
  - ASPHYXIA [None]
